FAERS Safety Report 6530326-7 (Version None)
Quarter: 2010Q1

REPORT INFORMATION
  Report Type: 
  Country: None (occurrence: None)
  Receive Date: 20100107
  Receipt Date: 20091229
  Transmission Date: 20100710
  Serious: Yes (Other)
  Sender: FDA-Public Use
  Company Number: US-JNJFOC-20100100254

PATIENT
  Age: 32 Year
  Sex: Female
  Weight: 68.04 kg

DRUGS (2)
  1. TYLENOL (CAPLET) [Suspect]
     Route: 048
  2. TYLENOL (CAPLET) [Suspect]
     Indication: MYALGIA
     Dosage: AS NEEDED
     Route: 048

REACTIONS (5)
  - DIARRHOEA [None]
  - HAEMORRHOIDS [None]
  - PRODUCT QUALITY ISSUE [None]
  - ULCER [None]
  - VOMITING [None]
